FAERS Safety Report 16974746 (Version 1)
Quarter: 2019Q4

REPORT INFORMATION
  Report Type: Report from Study
  Country: GB (occurrence: GB)
  Receive Date: 20191030
  Receipt Date: 20191030
  Transmission Date: 20200122
  Serious: Yes (Hospitalization)
  Sender: FDA-Public Use
  Company Number: GB-MYLANLABS-2019M1102921

PATIENT
  Sex: Female

DRUGS (3)
  1. FLUOXETINE [Concomitant]
     Active Substance: FLUOXETINE HYDROCHLORIDE
     Dosage: UNK
  2. BRABIO 20 MG/ML, SOLUTION FOR INJECTION, PRE-FILLED SYRINGE [Suspect]
     Active Substance: GLATIRAMER ACETATE
     Indication: MULTIPLE SCLEROSIS
     Dosage: 20 MILLIGRAM, QD
     Route: 058
     Dates: start: 201904
  3. BETMIGA [Concomitant]
     Active Substance: MIRABEGRON
     Dosage: UNK

REACTIONS (1)
  - Mass [Unknown]
